FAERS Safety Report 9991245 (Version 1)
Quarter: 2014Q1

REPORT INFORMATION
  Report Type: Spontaneous
  Country: US (occurrence: None)
  Receive Date: 20140123
  Receipt Date: 20140123
  Transmission Date: 20141002
  Serious: Yes (Hospitalization)
  Sender: FDA-Public Use
  Company Number: UTC-040072

PATIENT
  Age: 46 Year
  Sex: Female
  Weight: 90.9 kg

DRUGS (4)
  1. REMODULIN (2.5 MILLIGRAM/MILLILITERS, INJECTION FOR INFUSION) (TREPROSTINIL SODIUM) [Suspect]
     Indication: PULMONARY ARTERIAL HYPERTENSION
     Dosage: 57.6 UG/KG (0.04 UG/KG, 1 IN 1 MIN), INTRAVENOUS DRIP
     Dates: start: 20130510
  2. ADCIRCA (TADALAFIL) [Concomitant]
  3. REVATIO (SILDENAFIL CITRATE) [Concomitant]
  4. LETAIRIS (AMBRISENTAN) (TABLETS) [Concomitant]

REACTIONS (1)
  - Device related sepsis [None]
